FAERS Safety Report 23411749 (Version 4)
Quarter: 2024Q3

REPORT INFORMATION
  Report Type: Spontaneous
  Country: ES (occurrence: ES)
  Receive Date: 20240117
  Receipt Date: 20240717
  Transmission Date: 20241016
  Serious: Yes (Hospitalization, Other)
  Sender: BRISTOL MYERS SQUIBB
  Company Number: ES-BRISTOL-MYERS SQUIBB COMPANY-2024-007694

PATIENT
  Age: 72 Year
  Sex: Male

DRUGS (4)
  1. ELIQUIS [Suspect]
     Active Substance: APIXABAN
     Indication: Cerebrovascular accident
     Dates: end: 20240112
  2. ELIQUIS [Suspect]
     Active Substance: APIXABAN
     Dates: start: 20240117
  3. ENOXAPARIN SODIUM [Concomitant]
     Active Substance: ENOXAPARIN SODIUM
     Indication: Product used for unknown indication
     Dosage: 6000 60 MG/0.6 ML
  4. BISOPROLOL [Concomitant]
     Active Substance: BISOPROLOL\BISOPROLOL FUMARATE
     Indication: Product used for unknown indication
     Dosage: WHEN NEEDED

REACTIONS (10)
  - Back injury [Unknown]
  - Wound haemorrhage [Unknown]
  - Blindness [Unknown]
  - Arrhythmia [Unknown]
  - Blood pressure abnormal [Unknown]
  - Cataract [Unknown]
  - COVID-19 [Unknown]
  - Fall [Unknown]
  - Craniocerebral injury [Unknown]
  - Inability to afford medication [Unknown]
